FAERS Safety Report 4685146-5 (Version None)
Quarter: 2005Q2

REPORT INFORMATION
  Report Type: 
  Country: None (occurrence: None)
  Receive Date: 20050603
  Receipt Date: 20050520
  Transmission Date: 20051028
  Serious: Yes (Other)
  Sender: FDA-Public Use
  Company Number: 214665

PATIENT
  Sex: Female

DRUGS (5)
  1. MABTHERA (RITUXIMAB) CONC FOR SOLUTION FOR INFUSION [Suspect]
     Dosage: INTRAVENOUS
     Route: 042
  2. DOXORUBICIN HCL [Concomitant]
  3. VINCRISTINE [Concomitant]
  4. PREDNISONE [Concomitant]
  5. CYCLOPHOSPHAMIDE [Concomitant]

REACTIONS (2)
  - PNEUMONIA [None]
  - PULMONARY OEDEMA [None]
